FAERS Safety Report 15525699 (Version 12)
Quarter: 2021Q4

REPORT INFORMATION
  Report Type: Report from Study
  Country: FR (occurrence: FR)
  Receive Date: 20181018
  Receipt Date: 20211019
  Transmission Date: 20220304
  Serious: Yes (Death, Life-Threatening, Hospitalization)
  Sender: FDA-Public Use
  Company Number: FR-ROCHE-2129155

PATIENT
  Age: 79 Year
  Sex: Female
  Weight: 93 kg

DRUGS (105)
  1. RITUXIMAB [Suspect]
     Active Substance: RITUXIMAB
     Indication: Diffuse large B-cell lymphoma
     Dosage: DATE OF MOST RECENT DOSE OF RITUXIMAB PRIOR TO FIRST OCCURRENCE OF DIGESTIVE HEMORRHAGE: 22/MAY/2018
     Route: 042
     Dates: start: 20180522
  2. DOXORUBICIN [Suspect]
     Active Substance: DOXORUBICIN
     Indication: Diffuse large B-cell lymphoma
     Dosage: DATE OF MOST RECENT DOSE 99 MG OF DOXORUBICIN PRIOR TO INTESTINAL PERFORATION: 30/MAY/2018 99 MG AND
     Route: 042
     Dates: start: 20180530
  3. CYCLOPHOSPHAMIDE [Suspect]
     Active Substance: CYCLOPHOSPHAMIDE
     Indication: Diffuse large B-cell lymphoma
     Dosage: DATE OF MOST RECENT DOSE 1475 MG OF CYCLOPHOSPHAMIDE PRIOR TO INTESTINAL PERFORATION: 30/MAY/2018 (1
     Route: 042
     Dates: start: 20180530
  4. PREDNISONE [Suspect]
     Active Substance: PREDNISONE
     Indication: Diffuse large B-cell lymphoma
     Dosage: DATE OF MOST RECENT DOSE 80 MG OF DOXORUBICIN PRIOR TO DIGESTIVE HEMORRHAGE: 22/MAY/2018 AND PRIOR T
     Route: 042
     Dates: start: 20180522
  5. PLACEBO [Suspect]
     Active Substance: UNSPECIFIED INGREDIENT
     Indication: Diffuse large B-cell lymphoma
     Route: 042
     Dates: start: 20180530
  6. POLATUZUMAB VEDOTIN [Suspect]
     Active Substance: POLATUZUMAB VEDOTIN
     Indication: Diffuse large B-cell lymphoma
     Dosage: START DATE OF MOST RECENT DOSE OF STUDY DRUG PRIOR TO SAE 19/JUL/2018 (140 MG)
     Route: 042
     Dates: start: 20180530
  7. PANTOPRAZOLE [Concomitant]
     Active Substance: PANTOPRAZOLE
     Indication: Gastric ulcer
     Dates: start: 20180514
  8. PANTOPRAZOLE [Concomitant]
     Active Substance: PANTOPRAZOLE
     Route: 048
     Dates: start: 20180522, end: 20180531
  9. PANTOPRAZOLE [Concomitant]
     Active Substance: PANTOPRAZOLE
     Route: 042
     Dates: start: 20180603, end: 20180719
  10. PANTOPRAZOLE [Concomitant]
     Active Substance: PANTOPRAZOLE
     Route: 048
     Dates: start: 20180522, end: 20180523
  11. PANTOPRAZOLE [Concomitant]
     Active Substance: PANTOPRAZOLE
     Route: 042
     Dates: start: 20180806, end: 20180806
  12. PANTOPRAZOLE [Concomitant]
     Active Substance: PANTOPRAZOLE
     Route: 048
     Dates: start: 20180809, end: 20180914
  13. PREDNISONE [Concomitant]
     Active Substance: PREDNISONE
     Dates: start: 20180516, end: 20180517
  14. SOLU-MEDROL [Concomitant]
     Active Substance: METHYLPREDNISOLONE SODIUM SUCCINATE
     Indication: Lymphoma
     Route: 042
     Dates: start: 20180518, end: 20180522
  15. FUCIDINE [Concomitant]
     Dosage: ANTI INFECTIVE
     Route: 048
     Dates: end: 20180515
  16. CRESTOR [Concomitant]
     Active Substance: ROSUVASTATIN CALCIUM
     Indication: Dyslipidaemia
     Route: 048
     Dates: end: 20180516
  17. PREDNISONE [Concomitant]
     Active Substance: PREDNISONE
     Indication: Lymphoma
     Route: 048
     Dates: start: 20180516, end: 20180517
  18. CAPTOPRIL\HYDROCHLOROTHIAZIDE [Concomitant]
     Active Substance: CAPTOPRIL\HYDROCHLOROTHIAZIDE
     Indication: Hypertension
     Route: 048
     Dates: end: 20180603
  19. CAPTOPRIL\HYDROCHLOROTHIAZIDE [Concomitant]
     Active Substance: CAPTOPRIL\HYDROCHLOROTHIAZIDE
     Route: 048
     Dates: start: 20180518, end: 20180520
  20. FLUINDIONE [Concomitant]
     Active Substance: FLUINDIONE
     Indication: Atrial fibrillation
     Route: 048
     Dates: end: 20180603
  21. GLYCERIN\MINERAL OIL\PETROLATUM [Concomitant]
     Active Substance: GLYCERIN\MINERAL OIL\PETROLATUM
     Indication: Dry skin
     Route: 058
     Dates: start: 20180515, end: 20180521
  22. TITANOREINE [Concomitant]
     Active Substance: CARRAGEENAN\TITANIUM\ZINC
     Route: 054
     Dates: start: 20180515, end: 20180522
  23. BACTRIM [Concomitant]
     Active Substance: SULFAMETHOXAZOLE\TRIMETHOPRIM
     Dosage: ANTI INFECTIVE?800 UNIT UNKNOWN
     Route: 048
     Dates: start: 20180515, end: 20180603
  24. FUROSEMIDE [Concomitant]
     Active Substance: FUROSEMIDE
     Indication: Hypertension
     Route: 042
     Dates: start: 20180605, end: 20180609
  25. FUROSEMIDE [Concomitant]
     Active Substance: FUROSEMIDE
     Indication: Oedema
     Route: 042
     Dates: start: 20180531, end: 20180531
  26. FUROSEMIDE [Concomitant]
     Active Substance: FUROSEMIDE
     Route: 042
     Dates: start: 20180529, end: 20180530
  27. FUROSEMIDE [Concomitant]
     Active Substance: FUROSEMIDE
     Route: 048
     Dates: start: 20180604, end: 20180605
  28. FUROSEMIDE [Concomitant]
     Active Substance: FUROSEMIDE
     Route: 048
     Dates: end: 20180522
  29. FUROSEMIDE [Concomitant]
     Active Substance: FUROSEMIDE
     Route: 048
     Dates: start: 20180829, end: 20180829
  30. FUROSEMIDE [Concomitant]
     Active Substance: FUROSEMIDE
     Route: 048
     Dates: start: 20180830, end: 20180904
  31. MORPHINE [Concomitant]
     Active Substance: MORPHINE
     Indication: Pain
     Route: 042
     Dates: start: 20180531, end: 20180531
  32. MORPHINE [Concomitant]
     Active Substance: MORPHINE
     Route: 042
     Dates: start: 20180606, end: 20180606
  33. PHLOROGLUCINOL\1,3,5-TRIMETHOXYBENZENE [Concomitant]
     Active Substance: PHLOROGLUCINOL\1,3,5-TRIMETHOXYBENZENE
     Indication: Abdominal pain
     Route: 042
     Dates: start: 20180531, end: 20180531
  34. TRAMADOL [Concomitant]
     Active Substance: TRAMADOL
     Indication: Pain
     Route: 042
     Dates: start: 20180531, end: 20180531
  35. TRAMADOL [Concomitant]
     Active Substance: TRAMADOL
     Route: 048
     Dates: start: 20180717, end: 20180806
  36. CILASTATIN SODIUM\IMIPENEM [Concomitant]
     Active Substance: CILASTATIN SODIUM\IMIPENEM
     Indication: Erysipelas
     Dosage: 500/500 MG
     Route: 042
     Dates: start: 20180603, end: 20180618
  37. CILASTATIN SODIUM\IMIPENEM [Concomitant]
     Active Substance: CILASTATIN SODIUM\IMIPENEM
     Dosage: 500/500 MG
     Route: 042
     Dates: start: 20180625, end: 20180628
  38. CILASTATIN SODIUM\IMIPENEM [Concomitant]
     Active Substance: CILASTATIN SODIUM\IMIPENEM
     Route: 042
     Dates: start: 20180914, end: 20180920
  39. VANCOMYCIN [Concomitant]
     Active Substance: VANCOMYCIN
     Dosage: ANTI INFECTIVE
     Route: 042
     Dates: start: 20180603, end: 20180615
  40. VANCOMYCIN [Concomitant]
     Active Substance: VANCOMYCIN
     Dosage: ANTI INFECTIVE
     Route: 042
     Dates: start: 20180914, end: 20180917
  41. VANCOMYCIN [Concomitant]
     Active Substance: VANCOMYCIN
     Dosage: ANTI INFECTIVE
     Route: 042
     Dates: start: 20180829, end: 20180829
  42. CANCIDAS [Concomitant]
     Active Substance: CASPOFUNGIN ACETATE
     Dosage: INFECTION OF CANDIDA FEKIR
     Route: 042
     Dates: start: 20180604, end: 20180617
  43. CANCIDAS [Concomitant]
     Active Substance: CASPOFUNGIN ACETATE
     Dosage: ANTI INFECTIVE
     Route: 042
     Dates: start: 20180824, end: 20180829
  44. INNOHEP [Concomitant]
     Active Substance: TINZAPARIN SODIUM
     Route: 058
     Dates: start: 20180516, end: 20180522
  45. INNOHEP [Concomitant]
     Active Substance: TINZAPARIN SODIUM
     Route: 058
     Dates: start: 20180529, end: 20180531
  46. INNOHEP [Concomitant]
     Active Substance: TINZAPARIN SODIUM
     Route: 058
     Dates: start: 20180607, end: 20180805
  47. INNOHEP [Concomitant]
     Active Substance: TINZAPARIN SODIUM
     Dates: start: 20180514
  48. INNOHEP [Concomitant]
     Active Substance: TINZAPARIN SODIUM
     Route: 058
     Dates: start: 20180915, end: 201811
  49. KAYEXALATE [Concomitant]
     Active Substance: SODIUM POLYSTYRENE SULFONATE
     Indication: Hyperkalaemia
     Route: 048
     Dates: start: 20180529, end: 20180529
  50. NOVORAPID [Concomitant]
     Active Substance: INSULIN ASPART
     Indication: Hyperglycaemia
     Route: 058
     Dates: start: 20180530, end: 20180530
  51. CALCIUM CHLORIDE\POTASSIUM CHLORIDE\SODIUM LACTATE [Concomitant]
     Active Substance: CALCIUM CHLORIDE\POTASSIUM CHLORIDE\SODIUM LACTATE
     Dosage: IONIC SOLUTION
     Route: 042
     Dates: start: 20180608, end: 20180608
  52. CALCIUM CHLORIDE\MAGNESIUM CHLORIDE\MALIC ACID\POTASSIUM CHLORIDE\SODI [Concomitant]
     Active Substance: CALCIUM CHLORIDE\MAGNESIUM CHLORIDE\MALIC ACID\POTASSIUM CHLORIDE\SODIUM ACETATE\SODIUM CHLORIDE
     Route: 042
     Dates: start: 20180603, end: 20180606
  53. HEPARIN SODIUM [Concomitant]
     Active Substance: HEPARIN SODIUM
     Dosage: ANTI THROMBOSIS
     Route: 042
     Dates: start: 20180603, end: 20180607
  54. POTASSIUM CHLORIDE [Concomitant]
     Active Substance: POTASSIUM CHLORIDE
     Indication: Hypokalaemia
     Route: 042
     Dates: start: 20180608, end: 20180613
  55. BISOPROLOL [Concomitant]
     Active Substance: BISOPROLOL
     Indication: Atrial fibrillation
     Route: 048
     Dates: start: 20180529, end: 20180531
  56. BISOPROLOL [Concomitant]
     Active Substance: BISOPROLOL
     Route: 048
     Dates: end: 20180522
  57. BISOPROLOL [Concomitant]
     Active Substance: BISOPROLOL
     Route: 048
     Dates: start: 20180604, end: 20180613
  58. BISOPROLOL [Concomitant]
     Active Substance: BISOPROLOL
     Route: 048
     Dates: start: 20180614, end: 20180622
  59. BISOPROLOL [Concomitant]
     Active Substance: BISOPROLOL
     Route: 048
     Dates: start: 20180625
  60. LEUCOVORIN CALCIUM [Concomitant]
     Active Substance: LEUCOVORIN CALCIUM
     Dosage: ANTI VITAMINE B6 DEPLETION
     Route: 048
     Dates: start: 20180517
  61. LORATADINE [Concomitant]
     Active Substance: LORATADINE
     Dosage: ANTI ALLERGY
     Route: 048
     Dates: start: 20180516, end: 20180522
  62. LORATADINE [Concomitant]
     Active Substance: LORATADINE
     Route: 048
     Dates: start: 20180621
  63. LORATADINE [Concomitant]
     Active Substance: LORATADINE
     Route: 048
     Dates: start: 20180522
  64. ATORVASTATIN [Concomitant]
     Active Substance: ATORVASTATIN
     Indication: Dyslipidaemia
     Route: 048
     Dates: start: 20180517
  65. VALACYCLOVIR HYDROCHLORIDE [Concomitant]
     Active Substance: VALACYCLOVIR HYDROCHLORIDE
     Dosage: ANTI INFECTIVES
     Route: 048
     Dates: start: 20180515
  66. ACETAMINOPHEN [Concomitant]
     Active Substance: ACETAMINOPHEN
     Indication: Premedication
     Dosage: PREMEDICATION
     Route: 048
     Dates: start: 20180522, end: 20180921
  67. PIPERACILLIN SODIUM\TAZOBACTAM SODIUM [Concomitant]
     Active Substance: PIPERACILLIN SODIUM\TAZOBACTAM SODIUM
     Dosage: ANTI INFECTIVES
     Route: 042
     Dates: start: 20180528, end: 20180531
  68. ONDANSETRON [Concomitant]
     Active Substance: ONDANSETRON
     Dosage: PREMEDICATION
     Route: 048
     Dates: start: 20180530, end: 20180921
  69. MESNA [Concomitant]
     Active Substance: MESNA
     Dosage: PREMEDICATINON, PROPHYLAXIS FOR HEMORRHAGIC CYSTITIS
     Dates: start: 20180530, end: 20180921
  70. AMIKACIN [Concomitant]
     Active Substance: AMIKACIN
     Dosage: ANTI INFECTIVE?DROPS
     Route: 042
     Dates: start: 20180531, end: 20180531
  71. AMIKACIN [Concomitant]
     Active Substance: AMIKACIN
     Dosage: ANTI INFECTIVE
     Route: 042
     Dates: start: 20180728, end: 20180730
  72. POLARAMINE [Concomitant]
     Active Substance: DEXCHLORPHENIRAMINE MALEATE
     Dosage: ANTI ALLERGY
     Route: 042
     Dates: start: 20180618, end: 20180711
  73. RACECADOTRIL [Concomitant]
     Active Substance: RACECADOTRIL
     Route: 048
     Dates: start: 20180626
  74. FASTURTEC [Concomitant]
     Active Substance: RASBURICASE
     Dosage: ANTI LYSIS SYNDROM
     Route: 042
     Dates: start: 20180521, end: 20180521
  75. ALBUMIN HUMAN [Concomitant]
     Active Substance: ALBUMIN HUMAN
     Dosage: INCREASE OF BLOOD VOLUME
     Route: 042
     Dates: start: 20180607, end: 20180611
  76. FOLIC ACID [Concomitant]
     Active Substance: FOLIC ACID
     Route: 048
     Dates: start: 20180515
  77. AUGMENTIN [Concomitant]
     Active Substance: AMOXICILLIN\CLAVULANATE POTASSIUM
     Dosage: ANTI INFECTIVES
     Dates: end: 20180528
  78. MONTMORILLONITE [Concomitant]
     Active Substance: MONTMORILLONITE
     Dosage: ANTI DIARRHEA
     Route: 048
     Dates: start: 20180626, end: 20180703
  79. LOPERAMIDE [Concomitant]
     Active Substance: LOPERAMIDE
     Dosage: ANTI DIARRHEA
     Route: 048
     Dates: start: 20180703
  80. ACUPAN [Concomitant]
     Active Substance: NEFOPAM HYDROCHLORIDE
     Indication: Pain
     Route: 042
     Dates: start: 20180603, end: 20180621
  81. ACUPAN [Concomitant]
     Active Substance: NEFOPAM HYDROCHLORIDE
     Route: 048
     Dates: start: 20180620, end: 20180914
  82. DIPROSONE [Concomitant]
     Active Substance: BETAMETHASONE DIPROPIONATE
     Indication: Dry skin
     Route: 061
     Dates: start: 20180618, end: 20180711
  83. ALLOPURINOL [Concomitant]
     Active Substance: ALLOPURINOL
     Indication: Hyperuricaemia
     Route: 048
     Dates: end: 20180517
  84. ALLOPURINOL [Concomitant]
     Active Substance: ALLOPURINOL
     Route: 048
     Dates: start: 20180518, end: 20180711
  85. ALLOPURINOL [Concomitant]
     Active Substance: ALLOPURINOL
     Route: 048
     Dates: start: 20180727, end: 20180806
  86. ESIDREX [Concomitant]
     Active Substance: HYDROCHLOROTHIAZIDE
     Indication: Hypertension
     Route: 048
     Dates: start: 20180518, end: 20180520
  87. FILGRASTIM [Concomitant]
     Active Substance: FILGRASTIM
     Dosage: ANTI NEUTROPENIA
     Route: 042
     Dates: start: 20180605, end: 20180612
  88. FILGRASTIM [Concomitant]
     Active Substance: FILGRASTIM
     Dosage: ANTI NEUTROPENIA
     Route: 058
     Dates: start: 20180731, end: 20180805
  89. AERIUS [Concomitant]
     Dosage: ANTI ALLERGY
     Route: 048
     Dates: start: 20180516, end: 20180522
  90. AERIUS [Concomitant]
     Route: 048
     Dates: start: 20180522, end: 20180921
  91. TAHOR [Concomitant]
     Active Substance: ATORVASTATIN CALCIUM
     Indication: Dyslipidaemia
     Route: 048
     Dates: start: 20180517, end: 20180711
  92. FOLIC ACID [Concomitant]
     Active Substance: FOLIC ACID
     Dosage: ANTI HEMOLYTIC ANEMIA
     Route: 048
     Dates: end: 20180522
  93. IMODIUM [Concomitant]
     Active Substance: LOPERAMIDE HYDROCHLORIDE
     Route: 048
     Dates: start: 20180703
  94. ERYTHROPOIETIN [Concomitant]
     Active Substance: ERYTHROPOIETIN
     Indication: Anaemia
     Route: 058
     Dates: start: 20180720, end: 20181012
  95. ATOVAQUONE [Concomitant]
     Active Substance: ATOVAQUONE
     Route: 048
     Dates: start: 20180831, end: 20180920
  96. LEUCOVORIN CALCIUM [Concomitant]
     Active Substance: LEUCOVORIN CALCIUM
     Route: 048
     Dates: start: 20180517, end: 20180824
  97. LEUCOVORIN CALCIUM [Concomitant]
     Active Substance: LEUCOVORIN CALCIUM
     Route: 048
     Dates: start: 20180920
  98. PENTACARINAT [Concomitant]
     Active Substance: PENTAMIDINE ISETHIONATE
     Dates: start: 20180923
  99. PRIMPERAN [Concomitant]
     Active Substance: METOCLOPRAMIDE HYDROCHLORIDE
     Route: 048
     Dates: start: 20180720, end: 20180728
  100. TRANEXAMIC ACID [Concomitant]
     Active Substance: TRANEXAMIC ACID
     Indication: Haemorrhage
     Route: 042
     Dates: start: 20180806, end: 20180806
  101. BACTRIM [Concomitant]
     Active Substance: SULFAMETHOXAZOLE\TRIMETHOPRIM
  102. UROKINASE [Concomitant]
     Active Substance: UROKINASE
     Indication: Thrombolysis
     Route: 042
     Dates: start: 20180920, end: 20180920
  103. CEFIXIME [Concomitant]
     Active Substance: CEFIXIME
     Route: 048
     Dates: start: 20181025, end: 20181104
  104. POTASSIUM CHLORIDE [Concomitant]
     Active Substance: POTASSIUM CHLORIDE
     Indication: Hypokalaemia
     Route: 048
     Dates: start: 20181025, end: 20181102
  105. METHYLPREDNISOLONE [Concomitant]
     Active Substance: METHYLPREDNISOLONE
     Dates: start: 20180518, end: 20180522

REACTIONS (6)
  - Intestinal perforation [Recovered/Resolved]
  - Gastrointestinal haemorrhage [Recovered/Resolved]
  - Gastrointestinal haemorrhage [Recovered/Resolved]
  - Pulmonary embolism [Recovered/Resolved]
  - Hypovolaemia [Recovered/Resolved]
  - Infection [Recovered/Resolved]

NARRATIVE: CASE EVENT DATE: 20180522
